FAERS Safety Report 5254272-4 (Version None)
Quarter: 2007Q1

REPORT INFORMATION
  Report Type: 
  Country: None (occurrence: None)
  Receive Date: 20070302
  Receipt Date: 20070220
  Transmission Date: 20070707
  Serious: Yes (Hospitalization, Disabling)
  Sender: FDA-Public Use
  Company Number: FR-GLAXOSMITHKLINE-B0456124A

PATIENT
  Age: 84 Year
  Sex: Female

DRUGS (1)
  1. ARIXTRA [Suspect]
     Indication: PHLEBITIS
     Route: 058

REACTIONS (4)
  - HAEMATOMA [None]
  - JOINT SWELLING [None]
  - NERVE COMPRESSION [None]
  - SPINAL CORD DISORDER [None]
